FAERS Safety Report 14010628 (Version 1)
Quarter: 2017Q3

REPORT INFORMATION
  Report Type: Spontaneous
  Country: US (occurrence: US)
  Receive Date: 20170926
  Receipt Date: 20170926
  Transmission Date: 20171128
  Serious: Yes (Hospitalization, Other)
  Sender: FDA-Public Use
  Company Number: US-IPCA LABORATORIES LIMITED-IPC-2017-US-003051

PATIENT
  Age: 63 Year
  Sex: Male

DRUGS (5)
  1. SOFOSBUVIR [Suspect]
     Active Substance: SOFOSBUVIR
     Indication: CHRONIC HEPATITIS C
     Dosage: 400 MG, QD
     Route: 065
  2. WARFARIN SODIUM. [Suspect]
     Active Substance: WARFARIN SODIUM
     Dosage: 95 MG, UNK
     Route: 065
  3. WARFARIN SODIUM. [Suspect]
     Active Substance: WARFARIN SODIUM
     Dosage: 110 MG, UNK
     Route: 065
  4. WARFARIN SODIUM. [Suspect]
     Active Substance: WARFARIN SODIUM
     Indication: GRAFT THROMBOSIS
     Dosage: 102.5 MG, UNK
     Route: 065
  5. VELPATASVIR [Suspect]
     Active Substance: VELPATASVIR
     Indication: CHRONIC HEPATITIS C
     Dosage: 100 MG, QD
     Route: 065

REACTIONS (3)
  - Anticoagulation drug level below therapeutic [Recovered/Resolved]
  - Thrombosis [Recovered/Resolved]
  - Drug interaction [Recovered/Resolved]
